FAERS Safety Report 7048883-3 (Version None)
Quarter: 2010Q4

REPORT INFORMATION
  Report Type: 
  Country: None (occurrence: None)
  Receive Date: 20101018
  Receipt Date: 20101006
  Transmission Date: 20110411
  Serious: Yes (Hospitalization, Other)
  Sender: FDA-Public Use
  Company Number: CA-ELI_LILLY_AND_COMPANY-CA200903001032

PATIENT
  Age: 67 Year
  Sex: Male

DRUGS (10)
  1. FORTEO [Suspect]
     Indication: OSTEOPOROSIS
     Dosage: 20 UG, DAILY (1/D)
     Route: 058
     Dates: start: 20090123, end: 20090708
  2. ADVAIR DISKUS 100/50 [Concomitant]
  3. SPIRIVA [Concomitant]
  4. CALCIUM [Concomitant]
  5. VITAMIN D [Concomitant]
  6. OXYGEN [Concomitant]
     Dosage: CONTINUOUS
  7. ASPIRIN [Concomitant]
  8. PREDNISONE [Concomitant]
  9. TRIATEC [Concomitant]
  10. AVELOX [Concomitant]

REACTIONS (3)
  - DYSPNOEA [None]
  - EMPHYSEMA [None]
  - OXYGEN SATURATION DECREASED [None]
